FAERS Safety Report 9876964 (Version 1)
Quarter: 2014Q1

REPORT INFORMATION
  Report Type: Spontaneous
  Country: US (occurrence: US)
  Receive Date: 20140206
  Receipt Date: 20140206
  Transmission Date: 20141002
  Serious: No
  Sender: FDA-Public Use
  Company Number: US-PFIZER INC-2014031176

PATIENT
  Age: 39 Year
  Sex: Male
  Weight: 56.69 kg

DRUGS (1)
  1. VIAGRA [Suspect]
     Indication: ERECTILE DYSFUNCTION
     Dosage: UNK, AS NEEDED
     Route: 048
     Dates: start: 20131209, end: 201401

REACTIONS (2)
  - Penile swelling [Not Recovered/Not Resolved]
  - Pruritus genital [Not Recovered/Not Resolved]
